FAERS Safety Report 8822269 (Version 2)
Quarter: 2013Q1

REPORT INFORMATION
  Report Type: Spontaneous
  Country: BR (occurrence: BR)
  Receive Date: 20121003
  Receipt Date: 20130213
  Transmission Date: 20140127
  Serious: Yes (Hospitalization, Other)
  Sender: FDA-Public Use
  Company Number: PHHY2012BR085348

PATIENT
  Age: 71 Year
  Sex: Male

DRUGS (4)
  1. DIOVAN [Suspect]
     Indication: HYPERTENSION
     Dosage: 1 DF, DAILY
     Route: 048
  2. COMPOUNDED PHARMACEUTCIAL PREPARATION [Concomitant]
     Indication: ASTHENIA
     Dosage: 1 DF, QD
     Dates: start: 201208
  3. ATENOLOL [Concomitant]
     Indication: HYPERTENSION
     Dosage: 0.25 MG, QD
  4. ADEROGIL [Concomitant]
     Indication: ASTHENIA
     Dosage: UNK UKN, QD
     Dates: start: 2012

REACTIONS (9)
  - Cerebrospinal fluid leakage [Recovered/Resolved]
  - Meningitis [Recovered/Resolved]
  - Pyrexia [Recovered/Resolved]
  - Cerebral haematoma [Recovered/Resolved]
  - Fistula [Recovered/Resolved]
  - Tympanic membrane disorder [Not Recovered/Not Resolved]
  - Weight decreased [Recovered/Resolved]
  - Asthenia [Recovered/Resolved]
  - Diarrhoea [Recovered/Resolved]
